FAERS Safety Report 16668773 (Version 1)
Quarter: 2019Q3

REPORT INFORMATION
  Report Type: Report from Study
  Country: GB (occurrence: GB)
  Receive Date: 20190805
  Receipt Date: 20190805
  Transmission Date: 20191004
  Serious: Yes (Other)
  Sender: FDA-Public Use
  Company Number: GB-EMD SERONO-9109005

PATIENT
  Sex: Female

DRUGS (2)
  1. MAVENCLAD [Suspect]
     Active Substance: CLADRIBINE
     Indication: MULTIPLE SCLEROSIS
     Dosage: FIRST YEAR FIRST WEEK TREATMENT
     Route: 048
  2. MAVENCLAD [Suspect]
     Active Substance: CLADRIBINE
     Dosage: FIRST YEAR SECOND WEEK TREATMENT
     Route: 048

REACTIONS (5)
  - Dizziness [Unknown]
  - Ear infection bacterial [Recovered/Resolved]
  - Ocular hyperaemia [Unknown]
  - Feeling abnormal [Unknown]
  - Vomiting [Unknown]
